FAERS Safety Report 24449243 (Version 3)
Quarter: 2025Q2

REPORT INFORMATION
  Report Type: Spontaneous
  Country: US (occurrence: US)
  Receive Date: 20241017
  Receipt Date: 20250609
  Transmission Date: 20250716
  Serious: Yes (Other)
  Sender: MERCK SHARP & DOHME LLC
  Company Number: US-009507513-2410USA005153

PATIENT
  Age: 66 Year
  Sex: Female

DRUGS (26)
  1. KEYTRUDA [Suspect]
     Active Substance: PEMBROLIZUMAB
     Indication: Endometrial cancer stage III
     Dosage: 400 MG, D1 Q42D X4 V2.0
     Dates: start: 20231026
  2. LENVATINIB MESYLATE [Suspect]
     Active Substance: LENVATINIB MESYLATE
     Indication: Uterine cancer
     Dosage: 10 MG X 1 AND 4 MG X 1
     Route: 048
     Dates: start: 20240523
  3. LENVATINIB MESYLATE [Suspect]
     Active Substance: LENVATINIB MESYLATE
     Indication: Uterine cancer
     Dosage: 10 MG X 1 AND 4 MG X 1
     Route: 048
     Dates: start: 20250421
  4. LENVATINIB MESYLATE [Suspect]
     Active Substance: LENVATINIB MESYLATE
     Indication: Uterine cancer
     Dosage: 10 MG X 1 AND 4 MG X 1
     Route: 048
     Dates: start: 20241007
  5. LENVATINIB MESYLATE [Suspect]
     Active Substance: LENVATINIB MESYLATE
     Indication: Uterine cancer
     Dosage: 10 MG X 2
     Route: 048
     Dates: start: 20240325
  6. LENVATINIB MESYLATE [Suspect]
     Active Substance: LENVATINIB MESYLATE
     Indication: Uterine cancer
     Dates: start: 202310
  7. Alpha lopoic acid [Concomitant]
  8. Amoxicillin;potasium clavulanate [Concomitant]
     Dosage: AMOXICILLIN 875 MG-POTASSIUM CLAVULANATE 125 MG
     Route: 048
     Dates: start: 20221123
  9. AZITHROMYCIN [Concomitant]
     Active Substance: AZITHROMYCIN
     Route: 048
     Dates: start: 20230811
  10. BACTRIM DS [Concomitant]
     Active Substance: SULFAMETHOXAZOLE\TRIMETHOPRIM
     Dosage: STRENGTH:800MG-160 MG, 1 P.O BID
     Route: 048
     Dates: start: 20220916
  11. BACTRIM DS [Concomitant]
     Active Substance: SULFAMETHOXAZOLE\TRIMETHOPRIM
     Dosage: STRENGTH:800MG-160 MG, 1 P.O BID
     Route: 048
     Dates: start: 20230105
  12. BACTRIM DS [Concomitant]
     Active Substance: SULFAMETHOXAZOLE\TRIMETHOPRIM
     Dosage: STRENGTH:800MG-160 MG, 1 P.O BID
     Route: 048
     Dates: start: 20230305
  13. Mult vit [Concomitant]
     Route: 048
     Dates: start: 20220602
  14. VITAMIN B-COMPLEX [Concomitant]
     Active Substance: DEXPANTHENOL\NIACINAMIDE\PYRIDOXINE HYDROCHLORIDE\RIBOFLAVIN 5^-PHOSPHATE SODIUM\THIAMINE HYDROCHLOR
     Route: 048
  15. VITAMIN B12 [Concomitant]
     Active Substance: CYANOCOBALAMIN
     Route: 048
     Dates: start: 20220825
  16. VITAMIN C [Concomitant]
     Active Substance: ASCORBIC ACID
     Route: 048
     Dates: start: 20220206
  17. Vit D-3 [Concomitant]
     Route: 048
     Dates: start: 20220602
  18. ZINC [Concomitant]
     Active Substance: ZINC
     Route: 048
     Dates: start: 20220602
  19. Calium [Concomitant]
     Route: 048
     Dates: start: 20220602
  20. DIFLUCAN [Concomitant]
     Active Substance: FLUCONAZOLE
     Route: 048
     Dates: start: 20220610
  21. FOLIC ACID [Concomitant]
     Active Substance: FOLIC ACID
     Route: 048
     Dates: start: 20220602
  22. Hair nails [Concomitant]
     Route: 048
     Dates: start: 20230629
  23. IRON [Concomitant]
     Active Substance: IRON
     Route: 048
  24. LIDOCAINE\PRILOCAINE [Concomitant]
     Active Substance: LIDOCAINE\PRILOCAINE
     Dates: start: 20220506
  25. METFORMIN [Concomitant]
     Active Substance: METFORMIN HYDROCHLORIDE
     Dates: start: 20220602
  26. MINOCYCLINE [Concomitant]
     Active Substance: MINOCYCLINE HYDROCHLORIDE
     Dosage: STRENGTH: 100 MG
     Route: 048
     Dates: start: 20220602

REACTIONS (23)
  - Malignant neoplasm progression [Unknown]
  - Stomatitis [Recovering/Resolving]
  - Colonic fistula [Unknown]
  - Anal fistula [Unknown]
  - Recurrent cancer [Unknown]
  - Blood pressure abnormal [Recovered/Resolved]
  - Weight decreased [Recovering/Resolving]
  - Diarrhoea [Recovering/Resolving]
  - Anal fissure [Unknown]
  - Gastrointestinal disorder [Unknown]
  - Infusion site rash [Unknown]
  - Joint stiffness [Unknown]
  - Lichen sclerosus [Unknown]
  - Blood calcium abnormal [Recovered/Resolved]
  - Blood potassium abnormal [Recovered/Resolved]
  - Blood magnesium abnormal [Not Recovered/Not Resolved]
  - Nausea [Recovered/Resolved]
  - Decreased appetite [Recovered/Resolved]
  - Thyroid disorder [Recovering/Resolving]
  - Autoimmune dermatitis [Recovering/Resolving]
  - Cheilitis [Recovering/Resolving]
  - Anaemia [Unknown]
  - Neuropathy peripheral [Unknown]

NARRATIVE: CASE EVENT DATE: 20240301
